FAERS Safety Report 23930319 (Version 1)
Quarter: 2024Q2

REPORT INFORMATION
  Report Type: Spontaneous
  Country: US (occurrence: US)
  Receive Date: 20240602
  Receipt Date: 20240602
  Transmission Date: 20240715
  Serious: Yes (Hospitalization, Other)
  Sender: FDA-Public Use
  Company Number: US-DRL-USA-LIT/USA/24/0007855

PATIENT
  Age: 52 Year
  Sex: Male

DRUGS (6)
  1. GEMCITABINE [Suspect]
     Active Substance: GEMCITABINE
     Indication: Tumour flare
  2. GEMCITABINE [Suspect]
     Active Substance: GEMCITABINE
     Indication: Cutaneous T-cell lymphoma
  3. ROMIDEPSIN [Concomitant]
     Active Substance: ROMIDEPSIN
     Indication: Tumour flare
  4. ROMIDEPSIN [Concomitant]
     Active Substance: ROMIDEPSIN
     Indication: Cutaneous T-cell lymphoma
  5. PRALATREXATE [Concomitant]
     Active Substance: PRALATREXATE
     Indication: Tumour flare
  6. PRALATREXATE [Concomitant]
     Active Substance: PRALATREXATE
     Indication: Cutaneous T-cell lymphoma

REACTIONS (2)
  - Drug ineffective for unapproved indication [Unknown]
  - Disease progression [Unknown]
